FAERS Safety Report 12584155 (Version 2)
Quarter: 2016Q3

REPORT INFORMATION
  Report Type: Spontaneous
  Country: JP (occurrence: JP)
  Receive Date: 20160722
  Receipt Date: 20160728
  Transmission Date: 20161109
  Serious: Yes (Other)
  Sender: FDA-Public Use
  Company Number: JP-AMGEN-JPNSP2016088140

PATIENT
  Age: 72 Year
  Sex: Female

DRUGS (9)
  1. ONETAXOTERE [Suspect]
     Active Substance: DOCETAXEL
     Indication: BREAST CANCER
     Dosage: 120 MG, UNK
     Route: 041
     Dates: start: 20160506
  2. DEXART [Concomitant]
     Active Substance: DEXAMETHASONE SODIUM PHOSPHATE
     Dosage: 3.3 MG, BID
     Route: 041
     Dates: start: 20160527
  3. ENDOXAN [Suspect]
     Active Substance: CYCLOPHOSPHAMIDE
     Dosage: 960 MG, UNK
     Route: 041
     Dates: start: 20160527
  4. DEXART [Concomitant]
     Active Substance: DEXAMETHASONE SODIUM PHOSPHATE
     Dosage: 3.3 MG, BID
     Route: 041
     Dates: start: 20160506
  5. ENDOXAN [Suspect]
     Active Substance: CYCLOPHOSPHAMIDE
     Indication: BREAST CANCER
     Dosage: 960 MG, UNK
     Route: 041
     Dates: start: 20160506
  6. ALOXI [Concomitant]
     Active Substance: PALONOSETRON HYDROCHLORIDE
     Dosage: 75 MG, SINGLE
     Route: 041
     Dates: start: 20160506
  7. G-LASTA [Suspect]
     Active Substance: PEGFILGRASTIM
     Indication: COLONY STIMULATING FACTOR PROPHYLAXIS
     Dosage: 3.6 MG, UNK
     Route: 058
     Dates: start: 20160530
  8. ONETAXOTERE [Suspect]
     Active Substance: DOCETAXEL
     Dosage: 120 MG, UNK
     Route: 041
     Dates: start: 20160527
  9. ALOXI [Concomitant]
     Active Substance: PALONOSETRON HYDROCHLORIDE
     Dosage: 075 MG, SINGLE
     Route: 041
     Dates: start: 20160527

REACTIONS (4)
  - White blood cell count increased [Unknown]
  - Platelet count decreased [Unknown]
  - Urinary tract infection [Recovered/Resolved]
  - Blood uric acid increased [Recovered/Resolved]

NARRATIVE: CASE EVENT DATE: 20160607
